FAERS Safety Report 5350813-7 (Version None)
Quarter: 2007Q2

REPORT INFORMATION
  Report Type: 
  Country: None (occurrence: None)
  Receive Date: 20070608
  Receipt Date: 20070529
  Transmission Date: 20071010
  Serious: Yes (Death)
  Sender: FDA-Public Use
  Company Number: HQWYE418730MAY07

PATIENT
  Age: 77 Year
  Sex: Female

DRUGS (1)
  1. OSTELUC 200 [Suspect]
     Dosage: UNKNOWN
     Route: 048
     Dates: start: 20041101, end: 20041201

REACTIONS (1)
  - INTERSTITIAL LUNG DISEASE [None]
